FAERS Safety Report 6681002-1 (Version None)
Quarter: 2010Q2

REPORT INFORMATION
  Report Type: 
  Country: None (occurrence: None)
  Receive Date: 20100414
  Receipt Date: 20100402
  Transmission Date: 20101027
  Serious: Yes (Other)
  Sender: FDA-Public Use
  Company Number: US-PFIZER INC-2010042960

PATIENT
  Sex: Female
  Weight: 70.295 kg

DRUGS (6)
  1. LYRICA [Suspect]
     Indication: FIBROMYALGIA
     Dosage: 400 MG, 2X/DAY
     Route: 048
     Dates: start: 20080101, end: 20100201
  2. LYRICA [Suspect]
     Dosage: 200 MG, 2X/DAY
     Dates: start: 20100201, end: 20100221
  3. MINOCYCLINE [Concomitant]
     Dosage: 115 MG, UNK
  4. MAGNESIUM [Concomitant]
     Dosage: 600 MG, 1X/DAY AT NIGHT
  5. LOVAZA [Concomitant]
     Dosage: 3 G, UNK
  6. VITAMIN D [Concomitant]
     Dosage: 4000 IU, UNK

REACTIONS (9)
  - AMNESIA [None]
  - DIARRHOEA [None]
  - DYSPEPSIA [None]
  - HEADACHE [None]
  - HYPERHIDROSIS [None]
  - INSOMNIA [None]
  - NAUSEA [None]
  - WEIGHT DECREASED [None]
  - WITHDRAWAL SYNDROME [None]
